FAERS Safety Report 4397551-5 (Version None)
Quarter: 2004Q3

REPORT INFORMATION
  Report Type: 
  Country: None (occurrence: None)
  Receive Date: 20040708
  Receipt Date: 20040628
  Transmission Date: 20050211
  Serious: Yes (Hospitalization)
  Sender: FDA-Public Use
  Company Number: 2002004127

PATIENT
  Age: 79 Year
  Sex: Male

DRUGS (5)
  1. NORVASC [Suspect]
     Indication: ESSENTIAL HYPERTENSION
     Dosage: 5 MG (DAILY), ORAL
     Route: 048
     Dates: start: 20020110, end: 20020515
  2. NORMORIX MITE (HYDROCHLOROTHIAZIDE HYDROCHLORIDE) [Suspect]
     Indication: ESSENTIAL HYPERTENSION
     Dosage: ORAL
     Route: 048
     Dates: start: 20011220, end: 20020429
  3. CYANOCOBALAMIN (CYANOCOBALAMIN) [Concomitant]
  4. TIMPILO (PILOCARPINE HYDROCHLORIDE) [Concomitant]
  5. BRIMONIDINE TARTRATE (BRIMONIDINE TARTRATE) [Concomitant]

REACTIONS (4)
  - BONE MARROW DISORDER [None]
  - DRUG EFFECT DECREASED [None]
  - PANCYTOPENIA [None]
  - PURPURA [None]
